FAERS Safety Report 8577453-0 (Version None)
Quarter: 2012Q3

REPORT INFORMATION
  Report Type: 
  Country: None (occurrence: None)
  Receive Date: 20120807
  Receipt Date: 20120802
  Transmission Date: 20120928
  Serious: Yes (Other)
  Sender: FDA-Public Use
  Company Number: AR-GENZYME-CERZ-1002426

PATIENT
  Sex: Female

DRUGS (1)
  1. CEREZYME [Suspect]
     Indication: GAUCHER'S DISEASE
     Dosage: 60 U/KG, UNK
     Route: 042

REACTIONS (7)
  - PREGNANCY [None]
  - ABORTION SPONTANEOUS [None]
  - METRORRHAGIA [None]
  - ULTRASOUND UTERUS ABNORMAL [None]
  - ENDOMETRITIS [None]
  - SMEAR CERVIX ABNORMAL [None]
  - BLIGHTED OVUM [None]
